FAERS Safety Report 6936014-7 (Version None)
Quarter: 2010Q3

REPORT INFORMATION
  Report Type: 
  Country: None (occurrence: None)
  Receive Date: 20100823
  Receipt Date: 20100813
  Transmission Date: 20110219
  Serious: Yes (Other)
  Sender: FDA-Public Use
  Company Number: BR-ASTRAZENECA-2010SE38407

PATIENT
  Age: 84 Year
  Sex: Female

DRUGS (9)
  1. SEROQUEL [Suspect]
     Indication: RESTLESSNESS
     Route: 048
  2. CRESTOR [Suspect]
     Route: 048
  3. RIVOTRIL [Concomitant]
     Route: 048
  4. ASPIRIN [Concomitant]
     Route: 048
  5. PLAVIX [Concomitant]
     Route: 048
  6. BROMOPRIDE [Concomitant]
     Route: 048
  7. CITALOPRAM HYDROBROMIDE [Concomitant]
     Route: 048
  8. OSCAL D [Concomitant]
     Route: 048
  9. ALOIS [Concomitant]
     Route: 048

REACTIONS (2)
  - FEMUR FRACTURE [None]
  - OFF LABEL USE [None]
